FAERS Safety Report 14812818 (Version 2)
Quarter: 2018Q4

REPORT INFORMATION
  Report Type: Spontaneous
  Country: FR (occurrence: FR)
  Receive Date: 20180426
  Receipt Date: 20181025
  Transmission Date: 20190204
  Serious: Yes (Other)
  Sender: FDA-Public Use
  Company Number: FR-MERCK KGAA-2046527

PATIENT
  Sex: Female

DRUGS (1)
  1. EUTHYROX [Suspect]
     Active Substance: LEVOTHYROXINE SODIUM
     Indication: PRODUCT USED FOR UNKNOWN INDICATION

REACTIONS (20)
  - Headache [None]
  - Feeling hot [None]
  - Asthenia [None]
  - Hot flush [None]
  - Amnesia [None]
  - Dizziness [None]
  - Hypokinesia [None]
  - Presyncope [None]
  - Upper limb fracture [None]
  - Gait disturbance [None]
  - Constipation [None]
  - Loss of consciousness [None]
  - Fall [None]
  - Depression [None]
  - Loss of personal independence in daily activities [None]
  - Fatigue [None]
  - Discomfort [None]
  - Hyperhidrosis [None]
  - Gastrointestinal disorder [None]
  - Blood thyroid stimulating hormone decreased [None]

NARRATIVE: CASE EVENT DATE: 2017
